FAERS Safety Report 7936780-8 (Version None)
Quarter: 2011Q4

REPORT INFORMATION
  Report Type: 
  Country: None (occurrence: None)
  Receive Date: 20111123
  Receipt Date: 20111111
  Transmission Date: 20120403
  Serious: Yes (Life-Threatening, Hospitalization, Disabling)
  Sender: FDA-Public Use
  Company Number: JP-ROCHE-1009829

PATIENT
  Sex: Female
  Weight: 16 kg

DRUGS (4)
  1. ASPIRIN [Suspect]
     Route: 048
     Dates: start: 20100520, end: 20100531
  2. ROCEPHIN [Suspect]
     Indication: KAWASAKI'S DISEASE
     Dosage: DOSAGE IS UNCERTAIN.
     Route: 042
     Dates: start: 20100520, end: 20100523
  3. IMMUNE GLOBULIN INTRAVENOUS (HUMAN) [Suspect]
     Indication: KAWASAKI'S DISEASE
     Route: 042
     Dates: start: 20100524, end: 20100524
  4. ASPIRIN [Suspect]
     Indication: KAWASAKI'S DISEASE
     Route: 048
     Dates: start: 20100601, end: 20100720

REACTIONS (4)
  - CHOLELITHIASIS [None]
  - ENTEROCOLITIS [None]
  - BILE DUCT STONE [None]
  - BILE DUCT OBSTRUCTION [None]
